FAERS Safety Report 7356370-8 (Version None)
Quarter: 2011Q1

REPORT INFORMATION
  Report Type: 
  Country: None (occurrence: None)
  Receive Date: 20110316
  Receipt Date: 20110309
  Transmission Date: 20110831
  Serious: Yes (Other)
  Sender: FDA-Public Use
  Company Number: PT-PFIZER INC-2011052607

PATIENT
  Age: 78 Year
  Sex: Female

DRUGS (5)
  1. LORAZEPAM [Concomitant]
     Indication: ANXIETY
     Dosage: 1 MG, 1X/DAY
     Route: 048
     Dates: start: 19980101
  2. ALPRAZOLAM [Suspect]
     Indication: ANXIETY
     Dosage: 0.5 MG, 3X/DAY
     Route: 048
     Dates: start: 19980101
  3. VERAPAMIL [Concomitant]
     Indication: ANXIETY
     Dosage: UNK
     Dates: start: 19980101
  4. TRIMETAZIDINE [Concomitant]
     Indication: ANXIETY
     Dosage: UNK
     Dates: start: 19980101
  5. MAGNESIUM [Concomitant]
     Indication: ANXIETY
     Dosage: UNK
     Dates: start: 19980101

REACTIONS (8)
  - TARSAL TUNNEL SYNDROME [None]
  - AREFLEXIA [None]
  - MOTOR DYSFUNCTION [None]
  - HYPOAESTHESIA [None]
  - XEROPHTHALMIA [None]
  - DRY MOUTH [None]
  - DYSAESTHESIA [None]
  - ACTIVITIES OF DAILY LIVING IMPAIRED [None]
